FAERS Safety Report 4824251-7 (Version None)
Quarter: 2005Q4

REPORT INFORMATION
  Report Type: 
  Country: None (occurrence: None)
  Receive Date: 20051108
  Receipt Date: 20051027
  Transmission Date: 20060501
  Serious: No
  Sender: FDA-Public Use
  Company Number: 2005148854

PATIENT
  Age: 57 Year
  Sex: Male
  Weight: 77.1115 kg

DRUGS (9)
  1. SPIRONOLACTONE [Suspect]
     Indication: HYPERTENSION
     Dosage: 25 MG (QD), ORAL
     Route: 048
     Dates: start: 20031010
  2. LASIX [Suspect]
     Indication: CARDIAC FAILURE CONGESTIVE
     Dosage: 40 MG (QD), ORAL
     Route: 048
     Dates: start: 20031007
  3. BLINDED THERAPY (BLINDED THERAPY) [Suspect]
     Indication: CARDIOVASCULAR EVENT PROPHYLAXIS
     Dates: start: 20031001
  4. KAY CIEL DURA-TABS [Concomitant]
  5. DIGOXIN [Concomitant]
  6. LISINOPRIL [Concomitant]
  7. COREG [Concomitant]
  8. ZITHROMAX [Concomitant]
  9. TYLENOL [Concomitant]

REACTIONS (9)
  - BRONCHITIS [None]
  - CONGESTIVE CARDIOMYOPATHY [None]
  - DILATATION VENTRICULAR [None]
  - EJECTION FRACTION DECREASED [None]
  - MITRAL VALVE INCOMPETENCE [None]
  - SUPRAVENTRICULAR EXTRASYSTOLES [None]
  - SUPRAVENTRICULAR TACHYCARDIA [None]
  - VENTRICULAR HYPOKINESIA [None]
  - VENTRICULAR TACHYCARDIA [None]
